FAERS Safety Report 13074470 (Version 1)
Quarter: 2016Q4

REPORT INFORMATION
  Report Type: Spontaneous
  Country: US (occurrence: US)
  Receive Date: 20161230
  Receipt Date: 20161230
  Transmission Date: 20170207
  Serious: Yes (Hospitalization, Other)
  Sender: FDA-Public Use
  Company Number: US-AMGEN-USASP2016183504

PATIENT

DRUGS (3)
  1. DOXORUBICIN [Concomitant]
     Active Substance: DOXORUBICIN
     Dosage: 280 MG, UNK
  2. DEXAMETHASONE. [Concomitant]
     Active Substance: DEXAMETHASONE
     Dosage: 4 MG, UNK
  3. CARFILZOMIB [Suspect]
     Active Substance: CARFILZOMIB
     Indication: PLASMA CELL MYELOMA
     Dosage: 45 MG, UNK
     Route: 065

REACTIONS (3)
  - Bifascicular block [Unknown]
  - Hypotension [Unknown]
  - Cardio-respiratory arrest [Unknown]
